FAERS Safety Report 17106779 (Version 1)
Quarter: 2019Q4

REPORT INFORMATION
  Report Type: Spontaneous
  Country: FR (occurrence: FR)
  Receive Date: 20191203
  Receipt Date: 20191203
  Transmission Date: 20200122
  Serious: Yes (Hospitalization)
  Sender: FDA-Public Use
  Company Number: FR-MYLANLABS-2019M1116441

PATIENT
  Age: 51 Year
  Sex: Female
  Weight: 81 kg

DRUGS (3)
  1. CYTARABINE. [Suspect]
     Active Substance: CYTARABINE
     Indication: PRODUCT USED FOR UNKNOWN INDICATION
     Dosage: UNK
     Dates: start: 201807, end: 201904
  2. DAUNORUBICINE [Suspect]
     Active Substance: DAUNORUBICIN
     Indication: PRODUCT USED FOR UNKNOWN INDICATION
     Route: 042
     Dates: start: 201807
  3. METHOTREXATE. [Suspect]
     Active Substance: METHOTREXATE
     Indication: PRODUCT USED FOR UNKNOWN INDICATION
     Dosage: UNK
     Route: 037
     Dates: start: 201807, end: 201904

REACTIONS (2)
  - Disturbance in attention [Not Recovered/Not Resolved]
  - Diplopia [Not Recovered/Not Resolved]
